FAERS Safety Report 18034539 (Version 7)
Quarter: 2024Q1

REPORT INFORMATION
  Report Type: Report from Study
  Country: US (occurrence: US)
  Receive Date: 20200716
  Receipt Date: 20240325
  Transmission Date: 20240410
  Serious: Yes (Other)
  Sender: FDA-Public Use
  Company Number: US-JAZZ-2020-US-008863

PATIENT
  Age: 47 Year
  Sex: Male

DRUGS (49)
  1. XYREM [Suspect]
     Active Substance: SODIUM OXYBATE
     Indication: Narcolepsy
     Dosage: 2.25 GRAM, BID
     Route: 048
     Dates: start: 201505, end: 201505
  2. XYREM [Suspect]
     Active Substance: SODIUM OXYBATE
     Indication: Cataplexy
     Dosage: DOSE ADJUSTMENT
     Route: 048
     Dates: start: 201505, end: 201506
  3. XYREM [Suspect]
     Active Substance: SODIUM OXYBATE
     Indication: Somnolence
     Dosage: 4.5 GRAM, BID
     Route: 048
     Dates: start: 201506
  4. XYREM [Suspect]
     Active Substance: SODIUM OXYBATE
     Dosage: UNK
  5. LASIX [Suspect]
     Active Substance: FUROSEMIDE
     Indication: Product used for unknown indication
     Route: 048
  6. LANSOPRAZOLE [Concomitant]
     Active Substance: LANSOPRAZOLE
     Indication: Product used for unknown indication
     Dosage: UNK
     Dates: start: 201703
  7. LANSOPRAZOLE [Concomitant]
     Active Substance: LANSOPRAZOLE
     Dosage: UNK
  8. ADCIRCA [Concomitant]
     Active Substance: TADALAFIL
     Indication: Product used for unknown indication
     Dosage: UNK
     Dates: start: 20150521
  9. AUGMENTIN [Concomitant]
     Active Substance: AMOXICILLIN\CLAVULANATE POTASSIUM
     Indication: Product used for unknown indication
     Dosage: 875-125
     Dates: end: 202001
  10. AUGMENTIN [Concomitant]
     Active Substance: AMOXICILLIN\CLAVULANATE POTASSIUM
     Dosage: UNK
     Dates: end: 202001
  11. AUGMENTIN [Concomitant]
     Active Substance: AMOXICILLIN\CLAVULANATE POTASSIUM
     Dosage: UNK
     Dates: end: 202001
  12. AUGMENTIN [Concomitant]
     Active Substance: AMOXICILLIN\CLAVULANATE POTASSIUM
     Dosage: 875-125
  13. AUGMENTIN [Concomitant]
     Active Substance: AMOXICILLIN\CLAVULANATE POTASSIUM
     Dosage: UNK
  14. AUGMENTIN [Concomitant]
     Active Substance: AMOXICILLIN\CLAVULANATE POTASSIUM
     Dosage: UNK
  15. LETAIRIS [Concomitant]
     Active Substance: AMBRISENTAN
     Indication: Product used for unknown indication
  16. NEXIUM [Concomitant]
     Active Substance: ESOMEPRAZOLE MAGNESIUM
     Indication: Product used for unknown indication
     Dosage: UNK
     Dates: start: 202001
  17. NEXIUM [Concomitant]
     Active Substance: ESOMEPRAZOLE MAGNESIUM
     Dosage: UNK
  18. NUVIGIL [Concomitant]
     Active Substance: ARMODAFINIL
     Indication: Product used for unknown indication
     Dosage: 150 MG TABLET
     Dates: start: 20150519, end: 201705
  19. TADALAFIL [Concomitant]
     Active Substance: TADALAFIL
     Indication: Product used for unknown indication
     Dosage: UNK
     Dates: end: 202001
  20. TADALAFIL [Concomitant]
     Active Substance: TADALAFIL
     Dosage: UNK
     Dates: end: 202001
  21. TADALAFIL [Concomitant]
     Active Substance: TADALAFIL
     Dosage: UNK
     Dates: end: 202001
  22. TADALAFIL [Concomitant]
     Active Substance: TADALAFIL
     Dosage: UNK
  23. TADALAFIL [Concomitant]
     Active Substance: TADALAFIL
     Dosage: UNK
  24. TADALAFIL [Concomitant]
     Active Substance: TADALAFIL
     Dosage: UNK
  25. ELIQUIS [Concomitant]
     Active Substance: APIXABAN
     Indication: Product used for unknown indication
     Route: 048
  26. ELIQUIS [Concomitant]
     Active Substance: APIXABAN
     Route: 048
  27. CLOBETASOL [Concomitant]
     Active Substance: CLOBETASOL
     Indication: Product used for unknown indication
     Dosage: TOPICAL CREAM
  28. CLOBETASOL [Concomitant]
     Active Substance: CLOBETASOL
     Dosage: TOPICAL CREAM
  29. DOXYCYCLINE HYCLATE [Concomitant]
     Active Substance: DOXYCYCLINE HYCLATE
     Indication: Product used for unknown indication
     Route: 048
  30. DOXYCYCLINE HYCLATE [Concomitant]
     Active Substance: DOXYCYCLINE HYCLATE
     Route: 048
  31. ESOMEPRAZOLE [Concomitant]
     Active Substance: ESOMEPRAZOLE
     Indication: Product used for unknown indication
     Route: 048
  32. ESOMEPRAZOLE [Concomitant]
     Active Substance: ESOMEPRAZOLE
     Route: 048
  33. PROMETHAZINE DM [Concomitant]
     Active Substance: DEXTROMETHORPHAN HYDROBROMIDE\PROMETHAZINE HYDROCHLORIDE
     Indication: Cough
     Dosage: 6.25 MILLIGRAM-15MILLIGRAM/5 MILLILITER
     Route: 048
  34. PROMETHAZINE DM [Concomitant]
     Active Substance: DEXTROMETHORPHAN HYDROBROMIDE\PROMETHAZINE HYDROCHLORIDE
     Dosage: 6.25 MILLIGRAM-15MILLIGRAM/5 MILLILITER
     Route: 048
  35. BIKTARVY [Concomitant]
     Active Substance: BICTEGRAVIR SODIUM\EMTRICITABINE\TENOFOVIR ALAFENAMIDE FUMARATE
     Indication: Product used for unknown indication
     Route: 048
  36. BIKTARVY [Concomitant]
     Active Substance: BICTEGRAVIR SODIUM\EMTRICITABINE\TENOFOVIR ALAFENAMIDE FUMARATE
     Route: 048
  37. AMBRISENTAN [Concomitant]
     Active Substance: AMBRISENTAN
     Indication: Product used for unknown indication
     Route: 048
  38. AMBRISENTAN [Concomitant]
     Active Substance: AMBRISENTAN
     Route: 048
  39. PROAIR HFA [Concomitant]
     Active Substance: ALBUTEROL SULFATE
  40. CLOBETASOL [Concomitant]
     Active Substance: CLOBETASOL
  41. PROMETHAZINE [Concomitant]
     Active Substance: PROMETHAZINE HYDROCHLORIDE
     Indication: Cough
     Dosage: 5 MILLILITER, QID
     Route: 048
  42. BENZONATATE [Concomitant]
     Active Substance: BENZONATATE
     Indication: Cough
     Dosage: 200 MILLIGRAM, TID
  43. BENZONATATE [Concomitant]
     Active Substance: BENZONATATE
     Dosage: 200 MILLIGRAM, TID
  44. FUROSEMIDE [Concomitant]
     Active Substance: FUROSEMIDE
     Dosage: 1 TABLET BY MOUTH ONCE DAILY
     Route: 048
  45. FUROSEMIDE [Concomitant]
     Active Substance: FUROSEMIDE
     Dosage: 1 TABLET BY MOUTH ONCE DAILY
     Route: 048
  46. ALBUTEROL SULFATE [Concomitant]
     Active Substance: ALBUTEROL SULFATE
     Dosage: 2 PUFFS BY MOUTH EVERY 4 HOURS
  47. ALBUTEROL SULFATE [Concomitant]
     Active Substance: ALBUTEROL SULFATE
     Dosage: 2 PUFFS BY MOUTH EVERY 4 HOURS
  48. ONDANSETRON [Concomitant]
     Active Substance: ONDANSETRON
     Indication: Nausea
  49. ONDANSETRON [Concomitant]
     Active Substance: ONDANSETRON
     Indication: Vomiting

REACTIONS (12)
  - Clostridium difficile infection [Unknown]
  - Pulmonary arterial hypertension [Not Recovered/Not Resolved]
  - Infection [Unknown]
  - Cardiac failure congestive [Recovered/Resolved]
  - Otitis media [Recovered/Resolved]
  - Dyspnoea [Unknown]
  - Peripheral swelling [Unknown]
  - Nausea [Unknown]
  - Upper respiratory tract infection [Unknown]
  - Sinusitis [Recovering/Resolving]
  - Dysphonia [Unknown]
  - Product administration interrupted [Unknown]

NARRATIVE: CASE EVENT DATE: 20230101
